FAERS Safety Report 9125756 (Version 1)
Quarter: 2013Q1

REPORT INFORMATION
  Report Type: Spontaneous
  Country: US (occurrence: US)
  Receive Date: 20130117
  Receipt Date: 20130117
  Transmission Date: 20140127
  Serious: Yes (Hospitalization, Other)
  Sender: FDA-Public Use
  Company Number: US-009507513-2012SP023799

PATIENT
  Sex: Female

DRUGS (3)
  1. PEG-INTRON [Suspect]
     Indication: HEPATITIS C
     Dosage: UNK
     Route: 065
     Dates: start: 20120207, end: 20120503
  2. REBETOL [Suspect]
     Indication: HEPATITIS C
     Dosage: UNK
     Route: 048
     Dates: start: 20120207, end: 20120503
  3. AMITRIPTYLINE HYDROCHLORIDE [Concomitant]
     Dosage: UNK

REACTIONS (8)
  - Sedation [Unknown]
  - Bone pain [Unknown]
  - Insomnia [Unknown]
  - Fatigue [Unknown]
  - Abdominal pain [Unknown]
  - Myalgia [Unknown]
  - Drug ineffective [Unknown]
  - Hepatitis C [Unknown]
